FAERS Safety Report 25928265 (Version 1)
Quarter: 2025Q4

REPORT INFORMATION
  Report Type: Spontaneous
  Country: EU (occurrence: EU)
  Receive Date: 20251016
  Receipt Date: 20251016
  Transmission Date: 20260117
  Serious: Yes (Other)
  Sender: BEIGENE
  Company Number: EU-BEIGENE-BGN-2025-017489

PATIENT
  Age: 77 Year

DRUGS (1)
  1. BRUKINSA [Suspect]
     Active Substance: ZANUBRUTINIB
     Indication: Chronic lymphocytic leukaemia
     Dosage: 320 MILLIGRAM DAILY(80 MG ? 2X2 CAPSULES)

REACTIONS (5)
  - Bowen^s disease [Recovering/Resolving]
  - Respiratory tract infection [Recovering/Resolving]
  - Influenza [Recovering/Resolving]
  - Red blood cell count decreased [Recovering/Resolving]
  - Platelet count decreased [Recovering/Resolving]
